FAERS Safety Report 21744169 (Version 1)
Quarter: 2022Q4

REPORT INFORMATION
  Report Type: Spontaneous
  Country: IE (occurrence: IE)
  Receive Date: 20221218
  Receipt Date: 20221218
  Transmission Date: 20230113
  Serious: Yes (Other)
  Sender: FDA-Public Use
  Company Number: IE-HPRA-2022-100817

PATIENT
  Age: 59 Year
  Sex: Male
  Weight: 100 kg

DRUGS (5)
  1. OLANZAPINE [Suspect]
     Active Substance: OLANZAPINE
     Indication: Schizoaffective disorder
     Dosage: PATIENT HAS BEEN ON THIS DEPOT SINCE 2015
     Route: 030
     Dates: start: 2015
  2. OLANZAPINE [Suspect]
     Active Substance: OLANZAPINE
     Dosage: 300 MILLIGRAM (EVERY 2 WEEKS)
     Route: 030
     Dates: start: 20221102
  3. FLUOXETINE [Concomitant]
     Active Substance: FLUOXETINE HYDROCHLORIDE
     Indication: Schizoaffective disorder
     Dosage: 40 MILLIGRAM, ONCE A DAY(ON MEDICATION GREATER THAN 5 YEARS)
     Route: 065
  4. METFORMIN [Concomitant]
     Active Substance: METFORMIN HYDROCHLORIDE
     Indication: Weight control
     Dosage: 500 MILLIGRAM, TWO TIMES A DAY (ON MEDICATION GREATER THAN 5 YEARS)
     Route: 065
  5. OLANZAPINE [Concomitant]
     Active Substance: OLANZAPINE
     Indication: Schizoaffective disorder
     Dosage: 5 MILLIGRAM, ONCE A DAY (5MG NOCTE, ON MEDICATION GREATER THAN 5 YEARS)
     Route: 065

REACTIONS (1)
  - Post-injection delirium sedation syndrome [Recovered/Resolved]

NARRATIVE: CASE EVENT DATE: 20221102
